FAERS Safety Report 8066832-6 (Version None)
Quarter: 2012Q1

REPORT INFORMATION
  Report Type: 
  Country: None (occurrence: None)
  Receive Date: 20120124
  Receipt Date: 20120119
  Transmission Date: 20120608
  Serious: Yes (Hospitalization)
  Sender: FDA-Public Use
  Company Number: PHEH2011US02388

PATIENT
  Sex: Female

DRUGS (1)
  1. GILENYA [Suspect]
     Dosage: 0.5 MG, QD
     Route: 048
     Dates: start: 20110818

REACTIONS (6)
  - FEELING ABNORMAL [None]
  - DIZZINESS [None]
  - CHEST PAIN [None]
  - HEART RATE DECREASED [None]
  - DYSPNOEA [None]
  - ANXIETY [None]
